FAERS Safety Report 4507473-4 (Version None)
Quarter: 2004Q4

REPORT INFORMATION
  Report Type: 
  Country: None (occurrence: None)
  Receive Date: 20041118
  Receipt Date: 20040903
  Transmission Date: 20050328
  Serious: Yes (Hospitalization)
  Sender: FDA-Public Use
  Company Number: S04-FRA-07611-01

PATIENT
  Age: 40 Year
  Sex: Female
  Weight: 68 kg

DRUGS (7)
  1. CITALOPRAM HYDROBROMIDE [Suspect]
     Dosage: 30 MG QD PO
     Route: 048
     Dates: start: 20040625, end: 20040810
  2. METRONIDAZOLE [Suspect]
     Dosage: 500 MG QID PO
     Route: 048
     Dates: start: 20040719, end: 20040808
  3. PRIMAXIN [Suspect]
     Dosage: 500 MG BID
     Dates: start: 20040719, end: 20040808
  4. NEXIUM [Suspect]
     Dosage: 1 UNK QD
  5. ORGARAN [Suspect]
     Indication: THROMBOCYTOPENIA
     Dosage: 12 IU TID SC
     Route: 058
     Dates: start: 20040712
  6. CORDARONE [Concomitant]
     Indication: ATRIAL FIBRILLATION
     Dosage: 150 MG BID IV
     Route: 042
     Dates: start: 20040719
  7. INSULIN NOVO (INSULIN) [Concomitant]

REACTIONS (6)
  - ATRIAL FIBRILLATION [None]
  - KLEBSIELLA INFECTION [None]
  - LUNG DISORDER [None]
  - PATHOGEN RESISTANCE [None]
  - RASH MACULO-PAPULAR [None]
  - THROMBOCYTOPENIA [None]
